FAERS Safety Report 8576431-5 (Version None)
Quarter: 2012Q3

REPORT INFORMATION
  Report Type: 
  Country: None (occurrence: None)
  Receive Date: 20120807
  Receipt Date: 20120731
  Transmission Date: 20120928
  Serious: Yes (Hospitalization)
  Sender: FDA-Public Use
  Company Number: US-US-EMD SERONO, INC.-7054938

PATIENT
  Sex: Female

DRUGS (5)
  1. ZOLOFT [Concomitant]
     Indication: DEPRESSION
  2. COUMADIN [Concomitant]
     Indication: PULMONARY EMBOLISM
  3. REBIF [Suspect]
     Indication: MULTIPLE SCLEROSIS
     Dates: start: 20070101, end: 20090101
  4. REBIF [Suspect]
     Route: 058
     Dates: start: 20100301
  5. NEXIUM [Concomitant]
     Indication: EROSIVE OESOPHAGITIS

REACTIONS (3)
  - PUPILS UNEQUAL [None]
  - MULTIPLE SCLEROSIS RELAPSE [None]
  - INTERNATIONAL NORMALISED RATIO INCREASED [None]
